FAERS Safety Report 13154723 (Version 1)
Quarter: 2017Q1

REPORT INFORMATION
  Report Type: Report from Study
  Country: US (occurrence: US)
  Receive Date: 20170126
  Receipt Date: 20170126
  Transmission Date: 20170428
  Serious: No
  Sender: FDA-Public Use
  Company Number: US-AMGEN-USASL2016143183

PATIENT
  Age: 82 Year
  Sex: Male

DRUGS (1)
  1. KYPROLIS [Suspect]
     Active Substance: CARFILZOMIB
     Indication: PLASMA CELL MYELOMA
     Dosage: UNK, D1,2,8,9,15,16 PER 28 DAYS
     Route: 065

REACTIONS (2)
  - Malaise [Unknown]
  - Medication error [Unknown]
